FAERS Safety Report 6252891-X (Version None)
Quarter: 2009Q3

REPORT INFORMATION
  Report Type: 
  Country: None (occurrence: None)
  Receive Date: 20090701
  Receipt Date: 20090622
  Transmission Date: 20100115
  Serious: Yes (Hospitalization, Congenital Anomaly)
  Sender: FDA-Public Use
  Company Number: A0680310A

PATIENT
  Sex: Female
  Weight: 1.6 kg

DRUGS (7)
  1. PAXIL [Suspect]
     Indication: ANXIETY
     Dosage: 20MG PER DAY
     Dates: start: 20000101, end: 20030101
  2. VITAMIN TAB [Concomitant]
  3. STEROIDS [Concomitant]
  4. DESYREL [Concomitant]
     Dates: start: 20010201
  5. ZYPREXA [Concomitant]
     Dates: start: 20010201
  6. LITHIUM [Concomitant]
     Dates: end: 20010101
  7. TRAZODONE HCL [Concomitant]
     Dates: end: 20010101

REACTIONS (5)
  - ANAL FISSURE [None]
  - CONGENITAL ANOMALY [None]
  - CONSTIPATION [None]
  - DRUG EXPOSURE DURING PREGNANCY [None]
  - INTESTINAL OBSTRUCTION [None]
